FAERS Safety Report 4726913-9 (Version None)
Quarter: 2005Q3

REPORT INFORMATION
  Report Type: 
  Country: None (occurrence: None)
  Receive Date: 20050726
  Receipt Date: 20050707
  Transmission Date: 20060218
  Serious: Yes (Hospitalization)
  Sender: FDA-Public Use
  Company Number: FRWYE812107JUL05

PATIENT
  Age: 79 Year
  Sex: Male

DRUGS (4)
  1. CARDIOCOR                      (BISOPROLO) [Suspect]
     Indication: MYOCARDIAL ISCHAEMIA
     Dosage: ORAL
     Route: 048
     Dates: start: 20041101
  2. ADALAT [Suspect]
     Dosage: ORAL
     Route: 048
  3. COVERSYL (PERINDOPRIL, , 0) [Suspect]
     Dosage: ORAL
     Route: 048
  4. PLAVIX [Suspect]
     Dosage: ORAL
     Route: 048

REACTIONS (1)
  - PULMONARY FIBROSIS [None]
